FAERS Safety Report 7492342-0 (Version None)
Quarter: 2011Q2

REPORT INFORMATION
  Report Type: 
  Country: None (occurrence: None)
  Receive Date: 20110519
  Receipt Date: 20110518
  Transmission Date: 20111010
  Serious: Yes (Other)
  Sender: FDA-Public Use
  Company Number: US-PFIZER INC-2011107192

PATIENT
  Sex: Female
  Weight: 79.365 kg

DRUGS (4)
  1. CHANTIX [Suspect]
     Indication: SMOKING CESSATION THERAPY
     Dosage: 0.5 MG, 1X/DAY
     Route: 048
     Dates: start: 20110401
  2. CHANTIX [Suspect]
     Dosage: UNK
     Dates: start: 20110101, end: 20110101
  3. CHANTIX [Suspect]
     Dosage: 1 MG, 2X/DAY
     Dates: start: 20110101
  4. SYNTHROID [Concomitant]
     Indication: THYROID DISORDER
     Dosage: UNK

REACTIONS (4)
  - SWOLLEN TONGUE [None]
  - WEIGHT INCREASED [None]
  - GLOSSODYNIA [None]
  - TONGUE BLISTERING [None]
